FAERS Safety Report 7433291-3 (Version None)
Quarter: 2011Q2

REPORT INFORMATION
  Report Type: 
  Country: None (occurrence: None)
  Receive Date: 20110422
  Receipt Date: 20110416
  Transmission Date: 20111010
  Serious: No
  Sender: FDA-Public Use
  Company Number: US-B.I. PHARMACEUTICALS,INC./RIDGEFIELD-2011-BP-11004BP

PATIENT
  Sex: Female

DRUGS (1)
  1. PRADAXA [Suspect]
     Indication: HEART RATE IRREGULAR
     Route: 048
     Dates: start: 20110301

REACTIONS (5)
  - WHEEZING [None]
  - HEADACHE [None]
  - DIZZINESS [None]
  - RENAL PAIN [None]
  - DIZZINESS POSTURAL [None]
